FAERS Safety Report 13665720 (Version 2)
Quarter: 2017Q2

REPORT INFORMATION
  Report Type: Spontaneous
  Country: FR (occurrence: FR)
  Receive Date: 20170619
  Receipt Date: 20170629
  Transmission Date: 20170830
  Serious: Yes (Death, Other)
  Sender: FDA-Public Use
  Company Number: FR-EDENBRIDGE PHARMACEUTICALS, LLC-FR-2017EDE000070

PATIENT
  Age: 52 Year
  Sex: Female

DRUGS (2)
  1. HYDROXYCHLOROQUINE [Suspect]
     Active Substance: HYDROXYCHLOROQUINE
     Indication: DERMATOMYOSITIS
     Dosage: 200 MG, QD
  2. PREDNISOLONE SODIUM PHOSPHATE. [Suspect]
     Active Substance: PREDNISOLONE SODIUM PHOSPHATE
     Indication: DERMATOMYOSITIS
     Dosage: 40 MG, QD
     Route: 048

REACTIONS (8)
  - Hepatitis [Unknown]
  - Lymphopenia [Unknown]
  - Pneumocystis jirovecii pneumonia [Fatal]
  - Tracheal dilatation [Unknown]
  - Hypoxia [Not Recovered/Not Resolved]
  - Dyspnoea [Unknown]
  - Hepatitis cholestatic [Unknown]
  - Pain [Unknown]
